FAERS Safety Report 9169733 (Version 5)
Quarter: 2016Q3

REPORT INFORMATION
  Report Type: Spontaneous
  Country: US (occurrence: US)
  Receive Date: 20130318
  Receipt Date: 20160812
  Transmission Date: 20161109
  Serious: Yes (Hospitalization, Disabling, Other)
  Sender: FDA-Public Use
  Company Number: US-009507513-1303USA008128

PATIENT
  Sex: Female

DRUGS (6)
  1. FOSAMAX [Suspect]
     Active Substance: ALENDRONATE SODIUM
     Indication: OSTEOPOROSIS PROPHYLAXIS
     Dosage: UNK
     Route: 048
     Dates: start: 200505, end: 200603
  2. FOSAMAX PLUS D [Suspect]
     Active Substance: ALENDRONATE SODIUM\CHOLECALCIFEROL
     Indication: OSTEOPOROSIS PROPHYLAXIS
     Dosage: 2800 TAKE ONE TABLET BY MOUTH WEEKLY
     Route: 048
     Dates: start: 200603, end: 201205
  3. CALCIUM (UNSPECIFIED) [Concomitant]
     Active Substance: CALCIUM
  4. VITAMINS (UNSPECIFIED) [Concomitant]
     Active Substance: VITAMINS
  5. VITAMIN D [Concomitant]
     Active Substance: CHOLECALCIFEROL
  6. OMEGA-3 MARINE TRIGLYCERIDES [Concomitant]
     Active Substance: FISH OIL

REACTIONS (6)
  - Fracture nonunion [Unknown]
  - Intramedullary rod insertion [Unknown]
  - Septic shock [Unknown]
  - Osteoporosis [Unknown]
  - Femur fracture [Not Recovered/Not Resolved]
  - Central venous catheterisation [Unknown]

NARRATIVE: CASE EVENT DATE: 2005
